FAERS Safety Report 5892512-9 (Version None)
Quarter: 2008Q3

REPORT INFORMATION
  Report Type: 
  Country: None (occurrence: None)
  Receive Date: 20080923
  Receipt Date: 20080904
  Transmission Date: 20090109
  Serious: No
  Sender: FDA-Public Use
  Company Number: US-BAYER-200713978BCC

PATIENT
  Age: 82 Year
  Sex: Female
  Weight: 82 kg

DRUGS (7)
  1. ALEVE [Suspect]
     Indication: ARTHRITIS
     Route: 048
     Dates: start: 20050101, end: 20071001
  2. CALCIUM GLUCONATE [Concomitant]
     Dosage: TOTAL DAILY DOSE: 1200 MG
  3. CENTRUM SILVER [Concomitant]
  4. LOTENSIN [Concomitant]
  5. PLONIDENE (NOS) [Concomitant]
  6. CHROMIUM [Concomitant]
  7. TOPRAL [Concomitant]

REACTIONS (1)
  - BLOOD PRESSURE FLUCTUATION [None]
